FAERS Safety Report 8896917 (Version 1)
Quarter: 2012Q4

REPORT INFORMATION
  Report Type: Spontaneous
  Country: PT (occurrence: None)
  Receive Date: 20121102
  Receipt Date: 20121102
  Transmission Date: 20130627
  Serious: Yes (Other)
  Sender: FDA-Public Use
  Company Number: 1465862

PATIENT
  Age: 37 Year
  Sex: Female
  Weight: 55 kg

DRUGS (6)
  1. DOCETAXEL [Suspect]
     Indication: BREAST CANCER
     Dosage: 157 mg milligram(s) (21 day)
     Route: 041
     Dates: start: 20121018, end: 20121018
  2. PREDNISOLONE [Concomitant]
  3. ONDANSETRON [Concomitant]
  4. RANITIDINE [Concomitant]
  5. INTERFERON BETA [Concomitant]
  6. SODIUM CHLORIDE [Concomitant]

REACTIONS (3)
  - Erythema [None]
  - Pruritus [None]
  - Hypersensitivity [None]
